FAERS Safety Report 9937395 (Version 4)
Quarter: 2014Q2

REPORT INFORMATION
  Report Type: Report from Study
  Country: CA (occurrence: CA)
  Receive Date: 20140303
  Receipt Date: 20140402
  Transmission Date: 20141212
  Serious: Yes (Death, Life-Threatening, Hospitalization, Other)
  Sender: FDA-Public Use
  Company Number: CA-ROCHE-1330868

PATIENT
  Sex: Female

DRUGS (20)
  1. RITUXAN [Suspect]
     Indication: GRANULOMATOSIS WITH POLYANGIITIS
     Dosage: LAST DOSE: 24/DEC/2013
     Route: 042
     Dates: start: 20130719
  2. RITUXAN [Suspect]
     Dosage: FREQUENCY:  DAY 1 AND DAY 15
     Route: 042
     Dates: start: 20130726, end: 20131224
  3. PREDNISONE [Suspect]
     Indication: PRODUCT USED FOR UNKNOWN INDICATION
     Route: 065
  4. ACETAMINOPHEN [Concomitant]
     Route: 048
     Dates: start: 20130726, end: 20131224
  5. METHYLPREDNISOLONE [Concomitant]
     Route: 042
     Dates: start: 20130726, end: 20131224
  6. DIPHENHYDRAMINE HCL [Concomitant]
     Route: 048
     Dates: start: 20130726, end: 20131224
  7. ALPRAZOLAM [Concomitant]
  8. DOMPERIDONE [Concomitant]
  9. CITALOPRAM [Concomitant]
  10. BISOPROLOL [Concomitant]
  11. D-TABS [Concomitant]
  12. PANTOLOC [Concomitant]
  13. DIMENHYDRINATE [Concomitant]
  14. XYLOCAINE [Concomitant]
     Route: 065
  15. MAALOX PLUS [Concomitant]
  16. SALBUTAMOL [Concomitant]
  17. ADVAIR [Concomitant]
  18. VITAMIN B12 [Concomitant]
  19. NASONEX [Concomitant]
  20. SYSTANE [Concomitant]

REACTIONS (9)
  - Pneumonia [Fatal]
  - Acute respiratory distress syndrome [Fatal]
  - Purpura [Unknown]
  - Pneumomediastinum [Unknown]
  - Purpura [Unknown]
  - Granulomatosis with polyangiitis [Unknown]
  - Dyspepsia [Unknown]
  - Headache [Unknown]
  - Decreased appetite [Unknown]
